FAERS Safety Report 16233654 (Version 1)
Quarter: 2019Q2

REPORT INFORMATION
  Report Type: Spontaneous
  Country: US (occurrence: US)
  Receive Date: 20190423
  Receipt Date: 20190423
  Transmission Date: 20190711
  Serious: Yes (Other)
  Sender: FDA-Public Use
  Company Number: None

PATIENT
  Age: 75 Year
  Sex: Female
  Weight: 80 kg

DRUGS (1)
  1. BENZOCAINE 20% ORAL ANESTHETIC SPRAY [Suspect]
     Active Substance: BENZOCAINE
     Indication: LOCAL ANAESTHESIA
     Dosage: ?          OTHER FREQUENCY:ONCE;?
     Route: 061
     Dates: start: 20190422, end: 20190422

REACTIONS (2)
  - Methaemoglobinaemia [None]
  - Hypoxia [None]

NARRATIVE: CASE EVENT DATE: 20190422
